FAERS Safety Report 5767000-0 (Version None)
Quarter: 2008Q2

REPORT INFORMATION
  Report Type: 
  Country: None (occurrence: None)
  Receive Date: 20080612
  Receipt Date: 20080327
  Transmission Date: 20081010
  Serious: Yes (Hospitalization)
  Sender: FDA-Public Use
  Company Number: FR-AVENTIS-200812165FR

PATIENT
  Age: 81 Year
  Sex: Female

DRUGS (9)
  1. FLAGYL [Suspect]
     Route: 042
     Dates: start: 20080104, end: 20080106
  2. FLAGYL [Suspect]
     Route: 048
     Dates: start: 20080107, end: 20080114
  3. INIPOMP                            /01263201/ [Suspect]
     Route: 048
     Dates: start: 20080108, end: 20080114
  4. CIPROFLOXACIN HCL [Suspect]
     Route: 048
     Dates: start: 20080107, end: 20080114
  5. KARDEGIC                           /00002703/ [Concomitant]
  6. VALSARTAN AND HYDROCHLOROTHIAZIDE [Concomitant]
  7. ALLOPURINOL [Concomitant]
  8. BEFIZAL [Concomitant]
  9. LEXOMIL [Concomitant]

REACTIONS (2)
  - BLOOD CREATININE INCREASED [None]
  - RENAL FAILURE ACUTE [None]
